FAERS Safety Report 19486663 (Version 1)
Quarter: 2021Q3

REPORT INFORMATION
  Report Type: Spontaneous
  Country: US (occurrence: US)
  Receive Date: 20210701
  Receipt Date: 20210701
  Transmission Date: 20211014
  Serious: Yes (Hospitalization)
  Sender: FDA-Public Use
  Company Number: None

PATIENT
  Age: 81 Year
  Sex: Male

DRUGS (3)
  1. HYDRALAZINE [Concomitant]
     Active Substance: HYDRALAZINE HYDROCHLORIDE
  2. DOFETILIDE 500MCG CAP [Suspect]
     Active Substance: DOFETILIDE
     Indication: PULMONARY HYPERTENSION
     Route: 048
     Dates: start: 20180223
  3. ASPIRIN EC [Concomitant]
     Active Substance: ASPIRIN

REACTIONS (4)
  - Abnormal behaviour [None]
  - Gait disturbance [None]
  - Therapy interrupted [None]
  - Parkinsonism [None]

NARRATIVE: CASE EVENT DATE: 202103
